FAERS Safety Report 14719606 (Version 14)
Quarter: 2019Q3

REPORT INFORMATION
  Report Type: Spontaneous
  Country: US (occurrence: US)
  Receive Date: 20180405
  Receipt Date: 20190708
  Transmission Date: 20191004
  Serious: Yes (Hospitalization, Other)
  Sender: FDA-Public Use
  Company Number: US-PFIZER INC-2018116536

PATIENT
  Age: 77 Year
  Sex: Male
  Weight: 66 kg

DRUGS (14)
  1. HYTRIN [Concomitant]
     Active Substance: TERAZOSIN HYDROCHLORIDE
     Dosage: UNK
  2. TENORMIN [Concomitant]
     Active Substance: ATENOLOL
     Dosage: UNK
  3. LEVOTHYROXINE. [Concomitant]
     Active Substance: LEVOTHYROXINE
     Dosage: UNK
  4. PROTONIX [Concomitant]
     Active Substance: PANTOPRAZOLE SODIUM
     Dosage: UNK
  5. SUTENT [Suspect]
     Active Substance: SUNITINIB MALATE
     Indication: METASTATIC RENAL CELL CARCINOMA
     Dosage: 50 MG, CYCLIC(2 WEEKS ON/1 WEEK OFF)
     Dates: start: 20180328, end: 20180622
  6. BABY ASPIRIN [Concomitant]
     Active Substance: ASPIRIN
     Dosage: UNK
  7. FLOMAX [Concomitant]
     Active Substance: TAMSULOSIN HYDROCHLORIDE
     Dosage: UNK
  8. COZAAR [Concomitant]
     Active Substance: LOSARTAN POTASSIUM
     Dosage: UNK
     Dates: end: 20190520
  9. LOSARTAN. [Concomitant]
     Active Substance: LOSARTAN
     Dosage: UNK
     Dates: end: 20190520
  10. SUTENT [Suspect]
     Active Substance: SUNITINIB MALATE
     Dosage: UNK
     Dates: end: 20180716
  11. SIMVASTATIN. [Concomitant]
     Active Substance: SIMVASTATIN
     Dosage: UNK
  12. ATENOLOL. [Concomitant]
     Active Substance: ATENOLOL
     Dosage: UNK
  13. VITAMIN D [Concomitant]
     Active Substance: VITAMIN D NOS
     Dosage: UNK
  14. AMLODIPINE [Concomitant]
     Active Substance: AMLODIPINE BESYLATE
     Dosage: UNK

REACTIONS (41)
  - Malaise [Unknown]
  - Prostatomegaly [Not Recovered/Not Resolved]
  - Feeling abnormal [Unknown]
  - Hunger [Unknown]
  - Thyroid function test abnormal [Unknown]
  - Hyperhidrosis [Unknown]
  - Tremor [Recovered/Resolved]
  - Yellow skin [Recovered/Resolved]
  - Diplopia [Unknown]
  - Taste disorder [Recovering/Resolving]
  - Dyspepsia [Recovering/Resolving]
  - Influenza [Unknown]
  - Cheilitis [Recovering/Resolving]
  - Chromaturia [Unknown]
  - Chills [Unknown]
  - Urinary tract infection [Recovered/Resolved]
  - Blood creatinine abnormal [Not Recovered/Not Resolved]
  - Headache [Recovered/Resolved]
  - Clostridium difficile infection [Recovered/Resolved]
  - Pyrexia [Unknown]
  - White blood cell count increased [Recovered/Resolved]
  - Abdominal distension [Unknown]
  - Dysuria [Recovered/Resolved]
  - Somnolence [Recovering/Resolving]
  - Vomiting [Recovered/Resolved]
  - Fatigue [Unknown]
  - Blood pressure increased [Unknown]
  - Haemoglobin decreased [Unknown]
  - Asthenia [Recovering/Resolving]
  - Nasal discomfort [Recovering/Resolving]
  - Ageusia [Recovering/Resolving]
  - Renal impairment [Recovered/Resolved]
  - Lethargy [Recovered/Resolved]
  - Eye colour change [Recovered/Resolved]
  - Diarrhoea [Recovered/Resolved]
  - Weight decreased [Recovered/Resolved]
  - Weight increased [Recovered/Resolved]
  - Epistaxis [Not Recovered/Not Resolved]
  - Decreased appetite [Recovered/Resolved]
  - Hepatic function abnormal [Recovered/Resolved]
  - Hair colour changes [Not Recovered/Not Resolved]

NARRATIVE: CASE EVENT DATE: 20181107
